FAERS Safety Report 8360779-3 (Version None)
Quarter: 2012Q2

REPORT INFORMATION
  Report Type: 
  Country: None (occurrence: None)
  Receive Date: 20120515
  Receipt Date: 20120510
  Transmission Date: 20120825
  Serious: Yes (Other)
  Sender: FDA-Public Use
  Company Number: US-PFIZER INC-2012114723

PATIENT
  Sex: Female
  Weight: 61.224 kg

DRUGS (3)
  1. COUMADIN [Interacting]
     Indication: CARDIAC PROCEDURE COMPLICATION
     Dosage: UNK
     Route: 048
     Dates: start: 20001101
  2. NIASPAN [Concomitant]
     Dosage: 1000 MG, UNK
  3. PRISTIQ [Suspect]
     Indication: DEPRESSION
     Dosage: 50 MG, 1X/DAY
     Route: 048
     Dates: start: 20120105

REACTIONS (3)
  - BLOOD DISORDER [None]
  - INTERNATIONAL NORMALISED RATIO ABNORMAL [None]
  - DRUG INTERACTION [None]
